FAERS Safety Report 7394341-6 (Version None)
Quarter: 2011Q2

REPORT INFORMATION
  Report Type: 
  Country: None (occurrence: None)
  Receive Date: 20110405
  Receipt Date: 20110329
  Transmission Date: 20111010
  Serious: Yes (Other)
  Sender: FDA-Public Use
  Company Number: JP-PFIZER INC-2011070283

PATIENT
  Age: 43 Year
  Sex: Male

DRUGS (3)
  1. SOMAVERT [Suspect]
     Indication: ACROMEGALY
     Dosage: 15 MG, 1X/DAY
     Route: 058
     Dates: start: 20080601
  2. SOMAVERT [Suspect]
     Dosage: 30 MG, 1X/DAY
     Route: 058
     Dates: start: 20080801
  3. SOMAVERT [Suspect]
     Dosage: 20 MG, 1X/DAY
     Route: 058
     Dates: start: 20091201

REACTIONS (1)
  - PITUITARY TUMOUR BENIGN [None]
